FAERS Safety Report 5339533-2 (Version None)
Quarter: 2007Q2

REPORT INFORMATION
  Report Type: 
  Country: None (occurrence: None)
  Receive Date: 20070404
  Receipt Date: 20060303
  Transmission Date: 20071010
  Serious: Yes (Other)
  Sender: FDA-Public Use
  Company Number: 2006008252

PATIENT
  Age: 36 Year
  Sex: Female

DRUGS (3)
  1. GEODON [Suspect]
     Indication: ILL-DEFINED DISORDER
     Dosage: 40 MG (40 MG, 1 IN 1 D),
     Dates: start: 20051130, end: 20060106
  2. EFFEXOR [Concomitant]
  3. TRAZODONE HCL [Concomitant]

REACTIONS (14)
  - AGITATION [None]
  - ANXIETY [None]
  - ARTHRALGIA [None]
  - CHEST PAIN [None]
  - CHILLS [None]
  - COGNITIVE DISORDER [None]
  - DIZZINESS [None]
  - MUSCLE SPASMS [None]
  - MUSCLE TWITCHING [None]
  - PAIN IN EXTREMITY [None]
  - PARAESTHESIA [None]
  - SEDATION [None]
  - SLEEP DISORDER [None]
  - TONGUE DISORDER [None]
